FAERS Safety Report 17131734 (Version 2)
Quarter: 2019Q4

REPORT INFORMATION
  Report Type: Spontaneous
  Country: VN (occurrence: VN)
  Receive Date: 20191209
  Receipt Date: 20191216
  Transmission Date: 20200122
  Serious: Yes (Death)
  Sender: FDA-Public Use
  Company Number: VN-BAXTER-2019BAX024596

PATIENT
  Sex: Male

DRUGS (1)
  1. SEVOFLURANE. [Suspect]
     Active Substance: SEVOFLURANE
     Indication: PRODUCT USED FOR UNKNOWN INDICATION
     Dosage: THERAPY START DATE: 07MAY2019 AT 11:15 HOURS, THERAPY END DATE: 07MAY2019 AT 11:45 HOURS
     Route: 055
     Dates: start: 20190507, end: 20190507

REACTIONS (4)
  - Death [Fatal]
  - Tachycardia [Unknown]
  - Heart rate irregular [Unknown]
  - Heart rate decreased [Unknown]

NARRATIVE: CASE EVENT DATE: 20190507
